FAERS Safety Report 7179814-3 (Version None)
Quarter: 2010Q4

REPORT INFORMATION
  Report Type: 
  Country: None (occurrence: None)
  Receive Date: 20101221
  Receipt Date: 20101215
  Transmission Date: 20110411
  Serious: Yes (Other)
  Sender: FDA-Public Use
  Company Number: US-PFIZER INC-2010163460

PATIENT
  Sex: Male
  Weight: 108.84 kg

DRUGS (1)
  1. DILANTIN [Suspect]
     Dosage: UNK
     Dates: start: 19820101

REACTIONS (4)
  - ABDOMINAL HERNIA [None]
  - BARBITURATES POSITIVE [None]
  - CONVULSION [None]
  - LIPOMA [None]
